FAERS Safety Report 15319770 (Version 1)
Quarter: 2018Q3

REPORT INFORMATION
  Report Type: Spontaneous
  Country: US (occurrence: US)
  Receive Date: 20180827
  Receipt Date: 20180827
  Transmission Date: 20181010
  Serious: Yes (Other)
  Sender: FDA-Public Use
  Company Number: US-AMGEN-USASP2018115525

PATIENT
  Age: 84 Year
  Sex: Female

DRUGS (1)
  1. PROLIA [Suspect]
     Active Substance: DENOSUMAB
     Indication: PRODUCT USED FOR UNKNOWN INDICATION
     Dosage: UNK UNK, Q6MO
     Route: 065

REACTIONS (7)
  - Hyperhidrosis [Unknown]
  - Feeling hot [Unknown]
  - Constipation [Unknown]
  - Spinal compression fracture [Unknown]
  - Foot fracture [Unknown]
  - Loss of consciousness [Unknown]
  - Drug ineffective [Unknown]
